FAERS Safety Report 14839756 (Version 1)
Quarter: 2018Q2

REPORT INFORMATION
  Report Type: Spontaneous
  Country: BE (occurrence: BE)
  Receive Date: 20180503
  Receipt Date: 20180503
  Transmission Date: 20180711
  Serious: Yes (Death)
  Sender: FDA-Public Use
  Company Number: BE-SCIEGEN PHARMACEUTICALS INC-2018SCILIT00266

PATIENT
  Age: 72 Year
  Sex: Male

DRUGS (2)
  1. NABUMETONE TABLETS [Suspect]
     Active Substance: NABUMETONE
     Indication: ARTHRALGIA
     Dosage: UNK
     Route: 065
  2. OMEPRAZOLE. [Suspect]
     Active Substance: OMEPRAZOLE
     Indication: PRODUCT USED FOR UNKNOWN INDICATION
     Dosage: UNK
     Route: 065

REACTIONS (1)
  - Drug reaction with eosinophilia and systemic symptoms [Fatal]
